FAERS Safety Report 6835203-X (Version None)
Quarter: 2010Q3

REPORT INFORMATION
  Report Type: 
  Country: None (occurrence: None)
  Receive Date: 20100713
  Receipt Date: 20100630
  Transmission Date: 20110219
  Serious: Yes (Hospitalization)
  Sender: FDA-Public Use
  Company Number: US-SHIRE-ALL1-2010-03665

PATIENT

DRUGS (2)
  1. FOSRENOL [Suspect]
     Indication: HYPERPHOSPHATAEMIA
     Dosage: HALF OF A 500 MG TABLET WITH BIGGEST MEAL OF THE DAY
     Route: 048
     Dates: start: 20100517, end: 20100101
  2. FOSRENOL [Suspect]
     Dosage: 500 MG, 1X/DAY:QD WITH BIGGEST MEAL OF DAY
     Route: 048
     Dates: start: 20100101

REACTIONS (3)
  - ABDOMINAL PAIN UPPER [None]
  - BLOOD POTASSIUM INCREASED [None]
  - DIARRHOEA [None]
